FAERS Safety Report 23813069 (Version 2)
Quarter: 2025Q2

REPORT INFORMATION
  Report Type: Spontaneous
  Country: US (occurrence: US)
  Receive Date: 20240503
  Receipt Date: 20250506
  Transmission Date: 20250716
  Serious: Yes (Hospitalization, Other)
  Sender: AMNEAL
  Company Number: US-AMNEAL PHARMACEUTICALS-2023-AMRX-02028

PATIENT
  Age: 0 Year
  Sex: Male
  Weight: 7.982 kg

DRUGS (4)
  1. VIGABATRIN [Suspect]
     Active Substance: VIGABATRIN
     Indication: Infantile spasms
     Dosage: MIX 1 PACKET IN 10 ML OF WATER AND GIVE/TAKE 4 ML (200 MG) FOR 3 DAYS, THEN MIX 1 PACKET IN 10 ML OF
     Route: 048
     Dates: start: 20230515
  2. VIGABATRIN [Suspect]
     Active Substance: VIGABATRIN
     Route: 048
  3. VIGABATRIN [Suspect]
     Active Substance: VIGABATRIN
     Route: 065
  4. H.P. ACTHAR [Concomitant]
     Active Substance: CORTICOTROPIN
     Indication: Product used for unknown indication

REACTIONS (11)
  - Muscle spasms [Not Recovered/Not Resolved]
  - Seizure [Recovered/Resolved]
  - Hand-foot-and-mouth disease [Recovered/Resolved]
  - Tethered oral tissue [Recovered/Resolved]
  - Oral mucosal eruption [Recovered/Resolved]
  - Gingival swelling [Recovered/Resolved]
  - Stomatitis [Recovered/Resolved]
  - Oral pain [Recovered/Resolved]
  - Mood altered [Recovered/Resolved]
  - Pyrexia [Recovered/Resolved]
  - Product taste abnormal [Unknown]

NARRATIVE: CASE EVENT DATE: 20230604
